FAERS Safety Report 19937078 (Version 1)
Quarter: 2021Q4

REPORT INFORMATION
  Report Type: Spontaneous
  Country: US (occurrence: US)
  Receive Date: 20211010
  Receipt Date: 20211010
  Transmission Date: 20220303
  Serious: No
  Sender: FDA-Public Use
  Company Number: LUPR21-02857

PATIENT
  Age: 70 Year
  Sex: Female

DRUGS (1)
  1. ALBUTEROL SULFATE [Suspect]
     Active Substance: ALBUTEROL SULFATE
     Indication: Chronic obstructive pulmonary disease
     Dosage: UNK
     Dates: start: 20210926

REACTIONS (3)
  - Device delivery system issue [Unknown]
  - Product label issue [Unknown]
  - No adverse event [Unknown]

NARRATIVE: CASE EVENT DATE: 20210926
